FAERS Safety Report 4772008-8 (Version None)
Quarter: 2005Q3

REPORT INFORMATION
  Report Type: 
  Country: None (occurrence: None)
  Receive Date: 20050916
  Receipt Date: 20050906
  Transmission Date: 20060218
  Serious: Yes (Other)
  Sender: FDA-Public Use
  Company Number: IT-ABBOTT-05P-083-0310502-00

PATIENT
  Age: 5 Year
  Sex: Male

DRUGS (1)
  1. VALPROIC ACID [Suspect]
     Indication: EPILEPSY

REACTIONS (5)
  - GLYCOSURIA [None]
  - HYPOPHOSPHATAEMIA [None]
  - HYPOPROTEINAEMIA [None]
  - PROTEINURIA [None]
  - RENAL TUBULAR DISORDER [None]
